FAERS Safety Report 9933937 (Version 2)
Quarter: 2014Q2

REPORT INFORMATION
  Report Type: Spontaneous
  Country: GB (occurrence: None)
  Receive Date: 20140226
  Receipt Date: 20140408
  Transmission Date: 20141212
  Serious: Yes (Other)
  Sender: FDA-Public Use
  Company Number: AUR-APL-2014-01830

PATIENT
  Age: 57 Year
  Sex: Male

DRUGS (3)
  1. RIBAVIRIN (RIBAVIRIN) [Suspect]
     Indication: HEPATITIS C
  2. PEGINTERFERON (PEGINTERFERON) [Suspect]
     Indication: HEPATITIS C
  3. ZAPONEX [Suspect]
     Indication: PRODUCT USED FOR UNKNOWN INDICATION
     Dosage: (300 MG, 1 D)
     Route: 048
     Dates: start: 20050825, end: 201401

REACTIONS (4)
  - Leukopenia [None]
  - Neutropenia [None]
  - Thrombocytopenia [None]
  - Off label use [None]
